FAERS Safety Report 4798874-8 (Version None)
Quarter: 2005Q4

REPORT INFORMATION
  Report Type: 
  Country: None (occurrence: None)
  Receive Date: 20051014
  Receipt Date: 20051013
  Transmission Date: 20060501
  Serious: Yes (Life-Threatening)
  Sender: FDA-Public Use
  Company Number: FR-GLAXOSMITHKLINE-B0397110A

PATIENT
  Age: 29 Year
  Sex: Female
  Weight: 71 kg

DRUGS (1)
  1. CLAMOXYL [Suspect]
     Indication: INFECTION PROPHYLAXIS
     Dosage: 2G SINGLE DOSE
     Route: 042
     Dates: start: 20050801, end: 20050801

REACTIONS (4)
  - ANAPHYLACTIC SHOCK [None]
  - CAESAREAN SECTION [None]
  - DRUG EXPOSURE DURING PREGNANCY [None]
  - FOETAL DISTRESS SYNDROME [None]
